FAERS Safety Report 8117738-5 (Version None)
Quarter: 2011Q4

REPORT INFORMATION
  Report Type: 
  Country: None (occurrence: None)
  Receive Date: 20111227
  Receipt Date: 20101102
  Transmission Date: 20120403
  Serious: Yes (Other)
  Sender: FDA-Public Use
  Company Number: PHEH2010US20270

PATIENT
  Age: 73 Year
  Sex: Female

DRUGS (1)
  1. FEMARA [Suspect]
     Dosage: 2.5 MG, DAILY, ORAL
     Route: 048
     Dates: start: 20100615

REACTIONS (8)
  - BLOOD GLUCOSE INCREASED [None]
  - FATIGUE [None]
  - HIRSUTISM [None]
  - HYPERHIDROSIS [None]
  - VISUAL ACUITY REDUCED [None]
  - ALOPECIA [None]
  - CATARACT [None]
  - WEIGHT INCREASED [None]
